FAERS Safety Report 16307064 (Version 2)
Quarter: 2019Q2

REPORT INFORMATION
  Report Type: Spontaneous
  Country: US (occurrence: US)
  Receive Date: 20190513
  Receipt Date: 20190614
  Transmission Date: 20190711
  Serious: No
  Sender: FDA-Public Use
  Company Number: US-ASTRAZENECA-2019SE61638

PATIENT
  Age: 79 Year
  Sex: Female
  Weight: 69.4 kg

DRUGS (2)
  1. PULMICORT FLEXHALER [Suspect]
     Active Substance: BUDESONIDE
     Route: 055
  2. PULMICORT FLEXHALER [Suspect]
     Active Substance: BUDESONIDE
     Route: 055

REACTIONS (8)
  - Product storage error [Unknown]
  - Nervousness [Unknown]
  - Device issue [Unknown]
  - Thirst [Recovered/Resolved]
  - Product dose omission [Unknown]
  - Dyspnoea [Unknown]
  - Wrong technique in product usage process [Unknown]
  - Therapy cessation [Unknown]
